FAERS Safety Report 5761104-4 (Version None)
Quarter: 2008Q2

REPORT INFORMATION
  Report Type: 
  Country: None (occurrence: None)
  Receive Date: 20080606
  Receipt Date: 20080605
  Transmission Date: 20081010
  Serious: Yes (Death, Other)
  Sender: FDA-Public Use
  Company Number: US-BRISTOL-MYERS SQUIBB COMPANY-14214019

PATIENT
  Age: 19 Year
  Sex: Female

DRUGS (6)
  1. CYCLOPHOSPHAMIDE [Suspect]
  2. PREDNISONE TAB [Suspect]
  3. CYCLOSPORINE [Suspect]
     Indication: PROPHYLAXIS
  4. METHOTREXATE [Suspect]
     Indication: PROPHYLAXIS
  5. RADIATION THERAPY [Suspect]
  6. CORTICOSTEROID [Suspect]
     Indication: PROPHYLAXIS

REACTIONS (7)
  - ABDOMINAL PAIN [None]
  - CONSTIPATION [None]
  - CONVULSION [None]
  - GRAFT VERSUS HOST DISEASE [None]
  - HEPATIC FAILURE [None]
  - HERPES ZOSTER [None]
  - HYPONATRAEMIA [None]
